FAERS Safety Report 9659498 (Version 1)
Quarter: 2013Q4

REPORT INFORMATION
  Report Type: Spontaneous
  Country: IN (occurrence: IN)
  Receive Date: 20131031
  Receipt Date: 20131031
  Transmission Date: 20140711
  Serious: Yes (Death, Hospitalization)
  Sender: FDA-Public Use
  Company Number: PHHY2013IN122761

PATIENT
  Age: 16 Year
  Sex: Female

DRUGS (1)
  1. IMATINIB [Suspect]
     Indication: BREAST NEOPLASM
     Dosage: 300 MG, ONCE DAILY

REACTIONS (2)
  - Pulmonary tuberculosis [Fatal]
  - Sepsis [Fatal]
